FAERS Safety Report 14800376 (Version 3)
Quarter: 2018Q2

REPORT INFORMATION
  Report Type: Spontaneous
  Country: US (occurrence: US)
  Receive Date: 20180424
  Receipt Date: 20180516
  Transmission Date: 20180711
  Serious: Yes (Other)
  Sender: FDA-Public Use
  Company Number: US-009507513-1804USA007372

PATIENT
  Age: 29 Year
  Sex: Female
  Weight: 66.3 kg

DRUGS (2)
  1. NEXPLANON [Suspect]
     Active Substance: ETONOGESTREL
     Dosage: 1 DF, RIGHT ARM
     Route: 059
     Dates: start: 20141114, end: 20171107
  2. NEXPLANON [Suspect]
     Active Substance: ETONOGESTREL
     Indication: CONTRACEPTION
     Dosage: 1 DF, THREE YEARS
     Route: 059
     Dates: start: 20171107, end: 20171122

REACTIONS (6)
  - Complication of device removal [Recovered/Resolved]
  - Implant site pain [Recovered/Resolved]
  - Device difficult to use [Recovered/Resolved]
  - Surgery [Recovered/Resolved]
  - Implant site pain [Not Recovered/Not Resolved]
  - Device deployment issue [Recovered/Resolved]

NARRATIVE: CASE EVENT DATE: 201711
